FAERS Safety Report 10037410 (Version 1)
Quarter: 2014Q1

REPORT INFORMATION
  Report Type: Spontaneous
  Country: US (occurrence: None)
  Receive Date: 20140325
  Receipt Date: 20140325
  Transmission Date: 20141002
  Serious: Yes (Other)
  Sender: FDA-Public Use
  Company Number: None

PATIENT
  Age: 8 Year
  Sex: Male
  Weight: 45.36 kg

DRUGS (1)
  1. TOPAMAX [Suspect]
     Indication: MIGRAINE
     Route: 048
     Dates: start: 2012, end: 201210

REACTIONS (5)
  - Dysphemia [None]
  - Attention deficit/hyperactivity disorder [None]
  - Disturbance in attention [None]
  - Educational problem [None]
  - Memory impairment [None]
